FAERS Safety Report 4950559-0 (Version None)
Quarter: 2006Q1

REPORT INFORMATION
  Report Type: 
  Country: None (occurrence: None)
  Receive Date: 20060322
  Receipt Date: 20060209
  Transmission Date: 20060701
  Serious: Yes (Hospitalization, Other)
  Sender: FDA-Public Use
  Company Number: DE-JNJFOC-20060203004

PATIENT
  Sex: Female

DRUGS (2)
  1. REMINYL [Suspect]
     Dosage: TOTAL AMOUNT: 112 MG
     Route: 048
  2. REMINYL [Suspect]
     Route: 048

REACTIONS (5)
  - ACCIDENTAL OVERDOSE [None]
  - ATRIOVENTRICULAR BLOCK [None]
  - BRADYCARDIA [None]
  - DRUG TOXICITY [None]
  - VOMITING [None]
